FAERS Safety Report 7129697-2 (Version None)
Quarter: 2010Q4

REPORT INFORMATION
  Report Type: 
  Country: None (occurrence: None)
  Receive Date: 20101130
  Receipt Date: 20101119
  Transmission Date: 20110411
  Serious: Yes (Hospitalization, Other)
  Sender: FDA-Public Use
  Company Number: ES-AMGEN INC.-QUU442006

PATIENT

DRUGS (5)
  1. NPLATE [Suspect]
     Indication: IDIOPATHIC THROMBOCYTOPENIC PURPURA
     Dosage: 3 PG, QWK
     Route: 058
     Dates: start: 20090915, end: 20100706
  2. NPLATE [Suspect]
  3. NPLATE [Suspect]
  4. NPLATE [Suspect]
     Dosage: UNK
     Dates: start: 20090915, end: 20091202
  5. LANTUS [Concomitant]
     Dosage: 12 UNIT, QD

REACTIONS (7)
  - BONE PAIN [None]
  - CHILLS [None]
  - DISABILITY [None]
  - HEADACHE [None]
  - LUNG CANCER METASTATIC [None]
  - METASTASES TO CENTRAL NERVOUS SYSTEM [None]
  - MYALGIA [None]
